FAERS Safety Report 4313905-7 (Version None)
Quarter: 2004Q1

REPORT INFORMATION
  Report Type: 
  Country: None (occurrence: None)
  Receive Date: 20040305
  Receipt Date: 20040223
  Transmission Date: 20041129
  Serious: Yes (Other)
  Sender: FDA-Public Use
  Company Number: JP-JNJFOC-20040204716

PATIENT
  Age: 63 Year
  Sex: Male

DRUGS (2)
  1. FENTANYL [Suspect]
     Indication: CANCER PAIN
     Dosage: 7.5 MG, 1 IN 3 DAY; TRANSDERMAL
     Route: 062
     Dates: start: 20040109
  2. IRINOTECAN HYDROCHLORIDE (IRINOTECAN HYDROCHLORIDE) UNKNOWN [Suspect]
     Indication: RECTAL CANCER
     Dosage: 100 MG, IN 1 DAY; INTRAVENOUS DRIP
     Route: 041
     Dates: start: 20040210, end: 20040210

REACTIONS (4)
  - CRYING [None]
  - DRUG INTERACTION [None]
  - EXCITABILITY [None]
  - SCHIZOPHRENIA [None]
